FAERS Safety Report 7537809-1 (Version None)
Quarter: 2011Q2

REPORT INFORMATION
  Report Type: 
  Country: None (occurrence: None)
  Receive Date: 20110603
  Receipt Date: 20110518
  Transmission Date: 20111010
  Serious: Yes (Hospitalization)
  Sender: FDA-Public Use
  Company Number: 2011MA006052

PATIENT
  Age: 12 Year
  Sex: Male

DRUGS (4)
  1. ITRACONAZOLE [Concomitant]
  2. SULFATRIM [Suspect]
     Indication: PARACOCCIDIOIDES INFECTION
     Dosage: 8 MG/KG;QD
     Dates: start: 20010501, end: 20070401
  3. PREDNISONE [Suspect]
     Indication: PARACOCCIDIOIDES INFECTION
     Dosage: 1 MG/KG;QD
  4. AMPHOTERICIN B [Concomitant]

REACTIONS (8)
  - PARACOCCIDIOIDES INFECTION [None]
  - GENERAL PHYSICAL HEALTH DETERIORATION [None]
  - DISEASE RECURRENCE [None]
  - PURULENT DISCHARGE [None]
  - TREATMENT NONCOMPLIANCE [None]
  - PYREXIA [None]
  - DRUG INEFFECTIVE [None]
  - LYMPHADENOPATHY [None]
